FAERS Safety Report 16886392 (Version 1)
Quarter: 2019Q4

REPORT INFORMATION
  Report Type: Spontaneous
  Country: US (occurrence: US)
  Receive Date: 20191004
  Receipt Date: 20191004
  Transmission Date: 20200122
  Serious: No
  Sender: FDA-Public Use
  Company Number: US-PERRIGO-18US010106

PATIENT
  Age: 12 Year
  Sex: Female
  Weight: 40.82 kg

DRUGS (2)
  1. CHILDRENS CETIRIZINE HYDROCHLORIDE ALLERGY [Suspect]
     Active Substance: CETIRIZINE HYDROCHLORIDE
     Indication: HYPERSENSITIVITY
     Dosage: 10 MG, PRN
     Route: 048
     Dates: start: 2016
  2. CHILDRENS CETIRIZINE HYDROCHLORIDE ALLERGY [Suspect]
     Active Substance: CETIRIZINE HYDROCHLORIDE
     Dosage: 10 MG, TWICE WITHIN 24 HOURS
     Route: 048
     Dates: start: 20180923, end: 20180924

REACTIONS (1)
  - Inappropriate schedule of product administration [Recovered/Resolved]

NARRATIVE: CASE EVENT DATE: 20180923
